FAERS Safety Report 5221428-6 (Version None)
Quarter: 2007Q1

REPORT INFORMATION
  Report Type: 
  Country: None (occurrence: None)
  Receive Date: 20070126
  Receipt Date: 20070116
  Transmission Date: 20070707
  Serious: Yes (Death, Life-Threatening)
  Sender: FDA-Public Use
  Company Number: FR-PFIZER INC-2007004763

PATIENT
  Age: 53 Year
  Sex: Male
  Weight: 50 kg

DRUGS (3)
  1. VFEND [Suspect]
     Indication: ASPERGILLOSIS
     Route: 048
     Dates: start: 20061113, end: 20061201
  2. MOXIFLOXACIN HYDROCHLORIDE [Suspect]
     Route: 048
     Dates: start: 20061107, end: 20061201
  3. FLAGYL [Suspect]
     Route: 048
     Dates: start: 20061109, end: 20061201

REACTIONS (2)
  - CARDIAC ARREST [None]
  - HEPATITIS [None]
